FAERS Safety Report 9252412 (Version 1)
Quarter: 2013Q2

REPORT INFORMATION
  Report Type: Spontaneous
  Country: FR (occurrence: FR)
  Receive Date: 20130424
  Receipt Date: 20130424
  Transmission Date: 20140414
  Serious: Yes (Hospitalization)
  Sender: FDA-Public Use
  Company Number: FR-JNJFOC-20130409731

PATIENT
  Age: 2 Year
  Sex: Male

DRUGS (9)
  1. REMICADE [Suspect]
     Indication: ENTEROCOLITIS HAEMORRHAGIC
     Route: 042
  2. REMICADE [Suspect]
     Indication: ENTEROCOLITIS HAEMORRHAGIC
     Route: 042
     Dates: start: 20130206
  3. REMICADE [Suspect]
     Indication: ENTEROCOLITIS HAEMORRHAGIC
     Route: 042
     Dates: start: 20130109
  4. PENTASA [Concomitant]
     Route: 065
     Dates: end: 20130114
  5. CORTANCYL [Concomitant]
     Route: 065
     Dates: end: 201301
  6. VANCOMYCIN [Concomitant]
     Route: 065
     Dates: end: 201301
  7. VANCOMYCIN [Concomitant]
     Route: 065
  8. FLAGYL [Concomitant]
     Route: 065
  9. FLAGYL [Concomitant]
     Route: 065
     Dates: end: 201301

REACTIONS (4)
  - Rash [Recovered/Resolved]
  - Oxygen saturation decreased [Recovered/Resolved]
  - Off label use [Unknown]
  - Infusion related reaction [Recovered/Resolved]
